FAERS Safety Report 9680878 (Version 1)
Quarter: 2013Q4

REPORT INFORMATION
  Report Type: Spontaneous
  Country: GB (occurrence: GB)
  Receive Date: 20131111
  Receipt Date: 20131111
  Transmission Date: 20140711
  Serious: Yes (Life-Threatening)
  Sender: FDA-Public Use
  Company Number: GB-ASTELLAS-2013EU009615

PATIENT
  Age: 60 Year
  Sex: Female

DRUGS (1)
  1. MYCAMINE [Suspect]
     Indication: ASPERGILLUS INFECTION
     Dosage: 150 MG, UID/QD
     Route: 042
     Dates: start: 20131014, end: 20131017

REACTIONS (2)
  - Off label use [Unknown]
  - Hyponatraemia [Recovered/Resolved]
